FAERS Safety Report 7376196 (Version 3)
Quarter: 2022Q4

REPORT INFORMATION
  Report Type: Spontaneous
  Country: US (occurrence: None)
  Receive Date: 20100504
  Receipt Date: 20221009
  Transmission Date: 20230112
  Serious: Yes (Hospitalization, Other)
  Sender: FDA-Public Use
  Company Number: US-ROCHE-700272

PATIENT
  Age: 46 Year
  Sex: Female

DRUGS (4)
  1. BONIVA [Suspect]
     Active Substance: IBANDRONATE SODIUM
     Indication: Osteoporosis
     Route: 048
     Dates: start: 2000, end: 2009
  2. BONIVA [Suspect]
     Active Substance: IBANDRONATE SODIUM
     Indication: Osteopenia
  3. FOSAMAX [Suspect]
     Active Substance: ALENDRONATE SODIUM
     Indication: Osteoporosis
     Route: 048
     Dates: start: 2000, end: 2009
  4. FOSAMAX [Suspect]
     Active Substance: ALENDRONATE SODIUM
     Indication: Osteopenia

REACTIONS (12)
  - Stress fracture [Unknown]
  - Osteogenesis imperfecta [Unknown]
  - Femur fracture [Unknown]
  - Low turnover osteopathy [Unknown]
  - Emotional distress [Unknown]
  - Anxiety [Unknown]
  - Gastrooesophageal reflux disease [Unknown]
  - Stress fracture [Unknown]
  - Respiratory failure [Unknown]
  - Bronchitis [Unknown]
  - Contusion [Unknown]
  - Headache [Unknown]

NARRATIVE: CASE EVENT DATE: 20040509
